FAERS Safety Report 8303866 (Version 2)
Quarter: 2012Q4

REPORT INFORMATION
  Report Type: 
  Country: US (occurrence: US)
  Receive Date: 20111221
  Receipt Date: 20120831
  Transmission Date: 20130627
  Serious: Yes (Other)
  Sender: FDA-Public Use
  Company Number: US-BAYER-2011-120212

PATIENT
  Age: 30 Year
  Sex: Female
  Weight: 59 kg

DRUGS (4)
  1. YAZ [Suspect]
     Indication: ACNE
     Dosage: UNK
     Dates: start: 20080713, end: 20081006
  2. YAZ [Suspect]
     Indication: PREMENSTRUAL SYNDROME
     Dosage: UNK
     Dates: start: 20090725, end: 20090831
  3. FLUOXETINE HYDROCHLORIDE [Concomitant]
     Dosage: 10 mg, UNK
  4. IBUPROFEN [Concomitant]
     Dosage: 600 mg, UNK

REACTIONS (7)
  - Gallbladder disorder [None]
  - Cholecystitis chronic [None]
  - Anxiety [None]
  - Pain [None]
  - Injury [None]
  - Emotional distress [None]
  - Anxiety [None]
